FAERS Safety Report 8976118 (Version 1)
Quarter: 2012Q4

REPORT INFORMATION
  Report Type: 
  Country: JP (occurrence: JP)
  Receive Date: 20121220
  Receipt Date: 20121220
  Transmission Date: 20130627
  Serious: Yes (Hospitalization)
  Sender: FDA-Public Use
  Company Number: JP-ELI_LILLY_AND_COMPANY-JP201212000459

PATIENT
  Age: 75 Year
  Sex: Male

DRUGS (3)
  1. GEMZAR [Suspect]
     Indication: BLADDER CANCER
     Dosage: 800 mg/m2, other
     Route: 042
     Dates: start: 201209
  2. PARAPLATIN [Concomitant]
     Indication: BLADDER CANCER
     Dosage: UNK UNK, other
     Route: 042
     Dates: start: 201209
  3. DECADRON                           /00016002/ [Concomitant]
     Indication: PROPHYLAXIS OF NAUSEA AND VOMITING
     Dosage: UNK
     Route: 042
     Dates: start: 201209

REACTIONS (1)
  - Diabetes insipidus [Unknown]
